FAERS Safety Report 23899201 (Version 1)
Quarter: 2024Q2

REPORT INFORMATION
  Report Type: Spontaneous
  Country: US (occurrence: US)
  Receive Date: 20240526
  Receipt Date: 20240526
  Transmission Date: 20240716
  Serious: Yes (Hospitalization, Other)
  Sender: FDA-Public Use
  Company Number: US-DRL-USA-LIT/USA/24/0007433

PATIENT
  Age: 49 Year
  Sex: Male

DRUGS (3)
  1. AMIODARONE [Suspect]
     Active Substance: AMIODARONE
     Indication: Ventricular tachycardia
  2. LIDOCAINE [Concomitant]
     Active Substance: LIDOCAINE
     Indication: Ventricular tachycardia
  3. LIDOCAINE [Concomitant]
     Active Substance: LIDOCAINE
     Route: 040

REACTIONS (4)
  - Drug ineffective [Unknown]
  - Cardiogenic shock [Unknown]
  - Paralysis [Unknown]
  - Sedation [Unknown]
